FAERS Safety Report 16207537 (Version 3)
Quarter: 2019Q3

REPORT INFORMATION
  Report Type: Spontaneous
  Country: DE (occurrence: DE)
  Receive Date: 20190417
  Receipt Date: 20190913
  Transmission Date: 20191004
  Serious: Yes (Hospitalization)
  Sender: FDA-Public Use
  Company Number: DE-EMD SERONO-E2B_90067457

PATIENT
  Age: 40 Year
  Sex: Female

DRUGS (7)
  1. HCG [Concomitant]
     Active Substance: GONADOTROPHIN, CHORIONIC
     Indication: OVULATION INDUCTION
     Route: 065
     Dates: start: 20190329
  2. MENOGON [Suspect]
     Active Substance: MENOTROPINS
     Dosage: UNKNOWN DOSE
  3. PUREGON                            /01348901/ [Suspect]
     Active Substance: FOLLITROPIN
     Indication: ASSISTED REPRODUCTIVE TECHNOLOGY
     Route: 058
     Dates: start: 20190328, end: 20190329
  4. CETROTIDE [Suspect]
     Active Substance: CETRORELIX ACETATE
     Indication: ASSISTED REPRODUCTIVE TECHNOLOGY
     Route: 058
     Dates: start: 20190328, end: 20190329
  5. CETROTIDE [Suspect]
     Active Substance: CETRORELIX ACETATE
     Dosage: UNKNOWN DOSE
  6. MENOGON [Suspect]
     Active Substance: MENOTROPINS
     Indication: ASSISTED REPRODUCTIVE TECHNOLOGY
     Dosage: TWO AMP; POWDER AND SOLVENT FOR SOLUTION FOR INJECTION
     Route: 058
     Dates: start: 20190328, end: 20190329
  7. HMG                                /06269502/ [Suspect]
     Active Substance: MENOTROPINS
     Indication: ASSISTED REPRODUCTIVE TECHNOLOGY
     Dosage: 2 AMP
     Route: 058
     Dates: start: 20190328, end: 20190329

REACTIONS (1)
  - Pelvic haematoma [Recovered/Resolved]

NARRATIVE: CASE EVENT DATE: 20190401
